FAERS Safety Report 17218791 (Version 1)
Quarter: 2019Q4

REPORT INFORMATION
  Report Type: Spontaneous
  Country: US (occurrence: US)
  Receive Date: 20191231
  Receipt Date: 20191231
  Transmission Date: 20200122
  Serious: No
  Sender: FDA-Public Use
  Company Number: US-VERTEX PHARMACEUTICALS-2019-013546

PATIENT
  Age: 15 Year
  Sex: Male

DRUGS (21)
  1. ALBUTEROL [SALBUTAMOL] [Concomitant]
     Active Substance: ALBUTEROL
  2. LANTUS [Concomitant]
     Active Substance: INSULIN GLARGINE
  3. GLUCAGON. [Concomitant]
     Active Substance: GLUCAGON
  4. LACTULOSE. [Concomitant]
     Active Substance: LACTULOSE
  5. PEG [PREGABALIN] [Concomitant]
  6. TOPIRAMATE. [Concomitant]
     Active Substance: TOPIRAMATE
  7. AZITHROMYCIN ANHYDROUS. [Concomitant]
     Active Substance: AZITHROMYCIN ANHYDROUS
  8. MUPIROCIN. [Concomitant]
     Active Substance: MUPIROCIN
  9. COMBIVENT [Concomitant]
     Active Substance: ALBUTEROL SULFATE\IPRATROPIUM BROMIDE
  10. MELATONIN [Concomitant]
     Active Substance: MELATONIN
  11. DULERA [Concomitant]
     Active Substance: FORMOTEROL FUMARATE DIHYDRATE\MOMETASONE FUROATE
  12. SUMATRIPTAN. [Concomitant]
     Active Substance: SUMATRIPTAN
  13. LORATADINE. [Concomitant]
     Active Substance: LORATADINE
  14. MONTELUKAST [Concomitant]
     Active Substance: MONTELUKAST SODIUM
  15. TRIKAFTA [Suspect]
     Active Substance: ELEXACAFTOR\IVACAFTOR\TEZACAFTOR
     Indication: CYSTIC FIBROSIS
     Dosage: 2 TABLETS (100MG ELEXACAFTOR/ 50MG TEZACAFTOR/ 75 MG IVACAFTOR) AM; 1 TABLET (150MG IVACAFTOR) PM
     Route: 048
     Dates: start: 201911
  16. DOCUSATE [Concomitant]
     Active Substance: DOCUSATE
  17. FLUTICASONE. [Concomitant]
     Active Substance: FLUTICASONE
  18. HUMALOG [Concomitant]
     Active Substance: INSULIN LISPRO
  19. ZENPEP [Concomitant]
     Active Substance: PANCRELIPASE AMYLASE\PANCRELIPASE LIPASE\PANCRELIPASE PROTEASE
  20. NAPROXEN. [Concomitant]
     Active Substance: NAPROXEN
  21. VENTOLIN [Concomitant]
     Active Substance: ALBUTEROL SULFATE

REACTIONS (2)
  - Headache [Unknown]
  - Abdominal pain upper [Unknown]

NARRATIVE: CASE EVENT DATE: 2019
